FAERS Safety Report 6129166-2 (Version None)
Quarter: 2009Q1

REPORT INFORMATION
  Report Type: 
  Country: None (occurrence: None)
  Receive Date: 20090323
  Receipt Date: 20090323
  Transmission Date: 20090719
  Serious: Yes (Hospitalization)
  Sender: FDA-Public Use
  Company Number: None

PATIENT
  Age: 53 Year
  Sex: Male
  Weight: 74.3 kg

DRUGS (1)
  1. LISINOPRIL AND HYDROCHLOROTHIAZIDE [Suspect]
     Indication: ANGIOEDEMA
     Dosage: 1 TAB EVERY DAY PO
     Route: 048
     Dates: start: 20080623, end: 20090211

REACTIONS (2)
  - ABDOMINAL DISTENSION [None]
  - ANGIOEDEMA [None]
